FAERS Safety Report 17275751 (Version 1)
Quarter: 2020Q1

REPORT INFORMATION
  Report Type: Spontaneous
  Country: HR (occurrence: HR)
  Receive Date: 20200116
  Receipt Date: 20200116
  Transmission Date: 20200409
  Serious: Yes (Death)
  Sender: FDA-Public Use
  Company Number: HR-ALKEM LABORATORIES LIMITED-HR-ALKEM-2019-04659

PATIENT

DRUGS (1)
  1. METHADONE HYDROCHLORIDE. [Suspect]
     Active Substance: METHADONE HYDROCHLORIDE
     Indication: DRUG WITHDRAWAL MAINTENANCE THERAPY
     Dosage: UNK
     Route: 065

REACTIONS (2)
  - Overdose [Fatal]
  - Toxicity to various agents [Fatal]
